FAERS Safety Report 9605043 (Version 1)
Quarter: 2013Q4

REPORT INFORMATION
  Report Type: Spontaneous
  Country: ES (occurrence: ES)
  Receive Date: 20131008
  Receipt Date: 20131008
  Transmission Date: 20140711
  Serious: Yes (Hospitalization, Other)
  Sender: FDA-Public Use
  Company Number: ES-SHIRE-ALL1-2013-06704

PATIENT
  Age: 70 Year
  Sex: Male

DRUGS (3)
  1. MEZAVANT [Suspect]
     Indication: PROCTITIS ULCERATIVE
     Dosage: 4800 MG, 1X/DAY:QD
     Route: 048
     Dates: start: 20100812
  2. MERCAPTOPURINE [Interacting]
     Indication: PROCTITIS ULCERATIVE
     Dosage: 50 MG, 1X/DAY:QD
     Route: 048
     Dates: start: 20121004, end: 20130404
  3. INFLIXIMAB [Concomitant]
     Indication: PROCTITIS ULCERATIVE
     Dosage: 5 MG/KG, OTHER(8 WEEEKS)
     Route: 041
     Dates: start: 2012

REACTIONS (5)
  - Anaemia [Recovering/Resolving]
  - Insomnia [Not Recovered/Not Resolved]
  - Anxiety [Not Recovered/Not Resolved]
  - Hypertension [Not Recovered/Not Resolved]
  - Drug interaction [Unknown]
